FAERS Safety Report 7202065 (Version 2)
Quarter: 2014Q2

REPORT INFORMATION
  Report Type: Report from Study
  Country: JP (occurrence: JP)
  Receive Date: 20091207
  Receipt Date: 20140515
  Transmission Date: 20141212
  Serious: Yes (Death, Hospitalization)
  Sender: FDA-Public Use
  Company Number: JP-SANOFI-AVENTIS-2009SA001445

PATIENT
  Age: 78 Year
  Sex: Male
  Weight: 69 kg

DRUGS (8)
  1. DOCETAXEL [Suspect]
     Indication: PROSTATE CANCER
     Dosage: 70 MG/M2 TAKEN 3 TIMES AT AN INTERVAL OF 4 WEEKS
     Route: 041
     Dates: start: 20090818, end: 20091015
  2. THERAPEUTIC RADIOPHARMACEUTICALS [Suspect]
     Indication: PROSTATE CANCER
     Route: 065
  3. KYTRIL [Concomitant]
     Route: 042
     Dates: start: 20090818, end: 20091015
  4. ZOMETA [Concomitant]
     Indication: METASTASES TO BONE
     Route: 042
     Dates: start: 20090818, end: 20091015
  5. DEXAMETHASONE [Concomitant]
     Route: 048
     Dates: start: 20090818, end: 20091021
  6. MYSLEE [Concomitant]
     Indication: INSOMNIA
     Route: 048
     Dates: start: 20090824
  7. PREDNISOLONE [Concomitant]
     Indication: METASTASES TO BONE
  8. DENOSUMAB [Concomitant]
     Indication: METASTASES TO BONE

REACTIONS (7)
  - Interstitial lung disease [Fatal]
  - C-reactive protein increased [Fatal]
  - Oral candidiasis [Unknown]
  - Glossodynia [Unknown]
  - Gastrooesophageal reflux disease [Unknown]
  - Chest discomfort [Unknown]
  - White blood cell count decreased [Recovering/Resolving]
